FAERS Safety Report 6876702-4 (Version None)
Quarter: 2010Q3

REPORT INFORMATION
  Report Type: 
  Country: None (occurrence: None)
  Receive Date: 20100727
  Receipt Date: 20100715
  Transmission Date: 20110219
  Serious: Yes (Hospitalization)
  Sender: FDA-Public Use
  Company Number: JP-ROCHE-716732

PATIENT
  Sex: Female
  Weight: 52.9 kg

DRUGS (17)
  1. TOCILIZUMAB [Suspect]
     Indication: RHEUMATOID ARTHRITIS
     Route: 041
     Dates: start: 20090625, end: 20090625
  2. TOCILIZUMAB [Suspect]
     Route: 041
     Dates: start: 20090721, end: 20090721
  3. TOCILIZUMAB [Suspect]
     Route: 041
     Dates: start: 20090820, end: 20090820
  4. TOCILIZUMAB [Suspect]
     Route: 041
     Dates: start: 20090915, end: 20090915
  5. TOCILIZUMAB [Suspect]
     Route: 041
     Dates: start: 20091015, end: 20091015
  6. TOCILIZUMAB [Suspect]
     Route: 041
     Dates: start: 20091111, end: 20091111
  7. TOCILIZUMAB [Suspect]
     Route: 041
     Dates: start: 20100122, end: 20100122
  8. TOCILIZUMAB [Suspect]
     Route: 041
     Dates: start: 20100219, end: 20100219
  9. TOCILIZUMAB [Suspect]
     Route: 041
     Dates: start: 20100317, end: 20100317
  10. TOCILIZUMAB [Suspect]
     Route: 041
     Dates: start: 20100513
  11. BREDININ [Concomitant]
     Route: 048
  12. PREDNISOLONE [Concomitant]
     Route: 048
  13. ALTAT [Concomitant]
     Dosage: DRUG REPORTED: ROXATIDINE ACETATE HYDROCHLORIDE
     Route: 048
  14. CRESTOR [Concomitant]
     Dosage: DRUG: ROSUVASTATIN CALCIUM
     Route: 048
  15. ZYLORIC [Concomitant]
     Route: 048
  16. PEON [Concomitant]
     Route: 048
  17. CYTOTEC [Concomitant]
     Route: 048

REACTIONS (1)
  - RHEUMATOID ARTHRITIS [None]
